FAERS Safety Report 4939060-8 (Version None)
Quarter: 2006Q1

REPORT INFORMATION
  Report Type: 
  Country: None (occurrence: None)
  Receive Date: 20060309
  Receipt Date: 20050113
  Transmission Date: 20060701
  Serious: Yes (Hospitalization, Disabling)
  Sender: FDA-Public Use
  Company Number: US-MERCK-0501USA02304

PATIENT
  Age: 61 Year
  Sex: Female
  Weight: 57 kg

DRUGS (2)
  1. VIOXX [Suspect]
     Indication: PAIN
     Route: 048
     Dates: start: 20011224, end: 20040601
  2. VIOXX [Suspect]
     Indication: INTERVERTEBRAL DISC DEGENERATION
     Route: 048
     Dates: start: 20011224, end: 20040601

REACTIONS (33)
  - ANAEMIA [None]
  - ANAPHYLACTIC REACTION [None]
  - ANXIETY [None]
  - BLOOD PRESSURE INCREASED [None]
  - BRONCHITIS [None]
  - CEREBROVASCULAR ACCIDENT [None]
  - DEHYDRATION [None]
  - DEPRESSION [None]
  - DIARRHOEA [None]
  - ELECTROLYTE IMBALANCE [None]
  - FOOT FRACTURE [None]
  - GASTRIC ULCER [None]
  - HAEMATEMESIS [None]
  - HEADACHE [None]
  - HEART RATE INCREASED [None]
  - HEPATIC NEOPLASM MALIGNANT [None]
  - INAPPROPRIATE ANTIDIURETIC HORMONE SECRETION [None]
  - LOBAR PNEUMONIA [None]
  - LOSS OF CONSCIOUSNESS [None]
  - LUNG NEOPLASM MALIGNANT [None]
  - MAGNESIUM DEFICIENCY [None]
  - METASTASES TO CENTRAL NERVOUS SYSTEM [None]
  - MICROANGIOPATHY [None]
  - NAUSEA [None]
  - OESOPHAGITIS [None]
  - ORTHOSTATIC HYPOTENSION [None]
  - PHARYNGOLARYNGEAL PAIN [None]
  - THROMBOCYTOPENIA [None]
  - THROMBOSIS [None]
  - THROMBOTIC STROKE [None]
  - UPPER RESPIRATORY TRACT CONGESTION [None]
  - URINARY TRACT INFECTION [None]
  - VOMITING [None]
